FAERS Safety Report 15151463 (Version 3)
Quarter: 2019Q1

REPORT INFORMATION
  Report Type: Spontaneous
  Country: US (occurrence: US)
  Receive Date: 20180716
  Receipt Date: 20190201
  Transmission Date: 20190417
  Serious: No
  Sender: FDA-Public Use
  Company Number: US-ACTELION-A-US2018-175011

PATIENT
  Age: 79 Year
  Sex: Female

DRUGS (1)
  1. OPSUMIT [Suspect]
     Active Substance: MACITENTAN
     Indication: PULMONARY ARTERIAL HYPERTENSION
     Dosage: 10 MG, QD
     Route: 048
     Dates: start: 20180607

REACTIONS (9)
  - Epistaxis [Unknown]
  - Thrombosis [Unknown]
  - Hypersensitivity [Recovering/Resolving]
  - Sinus disorder [Not Recovered/Not Resolved]
  - Aphonia [Not Recovered/Not Resolved]
  - Headache [Unknown]
  - Urinary tract infection [Unknown]
  - Cough [Not Recovered/Not Resolved]
  - Insomnia [Not Recovered/Not Resolved]

NARRATIVE: CASE EVENT DATE: 20180622
